FAERS Safety Report 7298355-6 (Version None)
Quarter: 2011Q1

REPORT INFORMATION
  Report Type: 
  Country: None (occurrence: None)
  Receive Date: 20110217
  Receipt Date: 20110208
  Transmission Date: 20110831
  Serious: Yes (Other)
  Sender: FDA-Public Use
  Company Number: CA-JNJFOC-20110204093

PATIENT
  Sex: Female

DRUGS (4)
  1. METHOTREXATE [Concomitant]
  2. PREDNISONE TAB [Concomitant]
  3. PLAQUENIL [Concomitant]
  4. SIMPONI [Suspect]
     Indication: PRODUCT USED FOR UNKNOWN INDICATION
     Route: 058

REACTIONS (2)
  - BREAST MASS [None]
  - DRUG INEFFECTIVE [None]
